FAERS Safety Report 5072872-1 (Version None)
Quarter: 2006Q3

REPORT INFORMATION
  Report Type: 
  Country: None (occurrence: None)
  Receive Date: 20060802
  Receipt Date: 20060619
  Transmission Date: 20061208
  Serious: Yes (Death)
  Sender: FDA-Public Use
  Company Number: S06-NOR-02918-01

PATIENT
  Age: 53 Year
  Sex: Female

DRUGS (9)
  1. ESCITALOPRAM OXALATE [Suspect]
     Indication: ANXIETY
     Dosage: 5 MG QD PO
     Route: 048
     Dates: start: 20060523, end: 20060526
  2. ESCITALOPRAM OXALATE [Suspect]
     Indication: DEPRESSION
     Dosage: 5 MG QD PO
     Route: 048
     Dates: start: 20060523, end: 20060526
  3. FURADANTIN [Concomitant]
  4. HIPREX [Concomitant]
  5. VAGIFEM [Concomitant]
  6. LIVIAL [Concomitant]
  7. STILNOCT (ZOLPIDEM TARTRATE) [Concomitant]
  8. SOBRIL (OXAZEPAM) [Concomitant]
  9. DIAZEPAM [Concomitant]

REACTIONS (2)
  - COMPLETED SUICIDE [None]
  - INJURY ASPHYXIATION [None]
